FAERS Safety Report 11414911 (Version 1)
Quarter: 2015Q3

REPORT INFORMATION
  Report Type: Report from Study
  Country: US (occurrence: US)
  Receive Date: 20150825
  Receipt Date: 20150825
  Transmission Date: 20151125
  Serious: Yes (Other)
  Sender: FDA-Public Use
  Company Number: US-ROCHE-1607804

PATIENT
  Age: 78 Year
  Sex: Female

DRUGS (23)
  1. ESBRIET [Suspect]
     Active Substance: PIRFENIDONE
     Route: 048
  2. ESBRIET [Suspect]
     Active Substance: PIRFENIDONE
     Route: 048
     Dates: start: 20150420
  3. LIDOCAINE. [Concomitant]
     Active Substance: LIDOCAINE
     Indication: DYSPEPSIA
  4. NASONEX [Concomitant]
     Active Substance: MOMETASONE FUROATE
     Dosage: AS NEEDED.
     Route: 065
  5. OXYGEN. [Concomitant]
     Active Substance: OXYGEN
     Dosage: FOR 24 HOURS.
     Route: 065
  6. LIPITOR [Concomitant]
     Active Substance: ATORVASTATIN CALCIUM
  7. COLACE [Concomitant]
     Active Substance: DOCUSATE SODIUM
     Dosage: AS NEEDED
     Route: 048
  8. ATORVASTATIN CALCIUM. [Concomitant]
     Active Substance: ATORVASTATIN CALCIUM
     Route: 048
  9. LIDOCAINE. [Concomitant]
     Active Substance: LIDOCAINE
     Indication: DYSPEPSIA
  10. ESBRIET [Suspect]
     Active Substance: PIRFENIDONE
     Indication: IDIOPATHIC PULMONARY FIBROSIS
     Route: 048
     Dates: start: 201504
  11. CHOLECALCIFEROL [Concomitant]
     Active Substance: CHOLECALCIFEROL
     Dosage: 1000 UNITS.
     Route: 065
  12. BENADRYL [Concomitant]
     Active Substance: DIPHENHYDRAMINE HYDROCHLORIDE
     Indication: DYSPEPSIA
     Route: 065
  13. MAALOX (ALUMINUM HYDROXIDE/MAGNESIUM HYDROXIDE) [Concomitant]
     Indication: DYSPEPSIA
  14. PEPCID [Concomitant]
     Active Substance: FAMOTIDINE
     Dosage: AS NEEDED
     Route: 048
  15. SIMETHICONE (DIMETHICONE) [Concomitant]
     Active Substance: DIMETHICONE
     Dosage: AS NEEDED.
     Route: 048
  16. SYNTHROID [Concomitant]
     Active Substance: LEVOTHYROXINE SODIUM
     Route: 048
  17. LASIX [Concomitant]
     Active Substance: FUROSEMIDE
     Dosage: 1/2 DAILY.
     Route: 048
  18. BENADRYL [Concomitant]
     Active Substance: DIPHENHYDRAMINE HYDROCHLORIDE
     Indication: DYSPEPSIA
  19. MAALOX (ALUMINUM HYDROXIDE/MAGNESIUM HYDROXIDE) [Concomitant]
     Indication: DYSPEPSIA
  20. ASPIRIN. [Concomitant]
     Active Substance: ASPIRIN
     Route: 048
  21. ATORVASTATIN CALCIUM. [Concomitant]
     Active Substance: ATORVASTATIN CALCIUM
     Route: 048
  22. CLARITIN [Concomitant]
     Active Substance: LORATADINE
     Indication: SEASONAL ALLERGY
     Dosage: AS NEEDED.
     Route: 065
  23. LOPRESSOR [Concomitant]
     Active Substance: METOPROLOL TARTRATE
     Route: 048

REACTIONS (5)
  - Abdominal discomfort [Unknown]
  - Urinary tract infection [Recovered/Resolved]
  - Malaise [Unknown]
  - Pneumonia [Unknown]
  - Abdominal pain upper [Recovering/Resolving]

NARRATIVE: CASE EVENT DATE: 20150814
